FAERS Safety Report 4884921-1 (Version None)
Quarter: 2006Q1

REPORT INFORMATION
  Report Type: 
  Country: None (occurrence: None)
  Receive Date: 20060117
  Receipt Date: 20060103
  Transmission Date: 20060701
  Serious: Yes (Other)
  Sender: FDA-Public Use
  Company Number: 006229

PATIENT
  Age: 14 Year
  Sex: Female

DRUGS (2)
  1. CLARAVIS [Suspect]
     Indication: ACNE
     Dosage: SEE IMAGE
     Route: 048
     Dates: start: 20051104, end: 20051118
  2. CLARAVIS [Suspect]
     Indication: ACNE
     Dosage: SEE IMAGE
     Route: 048
     Dates: start: 20051104, end: 20051118

REACTIONS (6)
  - DIABETES MELLITUS NON-INSULIN-DEPENDENT [None]
  - FEELING ABNORMAL [None]
  - FEELING JITTERY [None]
  - NERVOUSNESS [None]
  - POLLAKIURIA [None]
  - WEIGHT DECREASED [None]
